FAERS Safety Report 8347656-9 (Version None)
Quarter: 2012Q2

REPORT INFORMATION
  Report Type: 
  Country: None (occurrence: None)
  Receive Date: 20120507
  Receipt Date: 20120419
  Transmission Date: 20120825
  Serious: Yes (Hospitalization)
  Sender: FDA-Public Use
  Company Number: DSA_56266_2012

PATIENT
  Age: 64 Year
  Sex: Male

DRUGS (13)
  1. ALDACTAZINE (ALDAZTAZINE - ALTHIAZIDE / SPIRONOLACTONE) 1 DF (NOT SPEC [Suspect]
     Indication: HYPERTENSION
     Dosage: 1 DF QD ORAL
     Route: 048
     Dates: start: 20081001
  2. DIGOXIN [Suspect]
     Indication: PRODUCT USED FOR UNKNOWN INDICATION
     Dosage: DF ORAL
     Route: 048
     Dates: start: 20081001
  3. OMEPRAZOLE [Suspect]
     Indication: GASTRITIS
     Dosage: 1 DF QD ORAL
     Route: 048
     Dates: start: 20081001
  4. LEVOTHYROXINE SODIUM [Suspect]
     Indication: HYPOTHYROIDISM
     Dosage: 1 DF QD ORAL
     Route: 048
     Dates: start: 20081001
  5. TRANDATE [Suspect]
     Indication: HYPERTENSION
     Dosage: 10 MG QD ORAL
     Route: 048
     Dates: start: 20081001
  6. ALLOPURINOL [Suspect]
     Indication: GOUT
     Dosage: 200 MG QD ORAL
     Route: 048
     Dates: start: 20081001, end: 20120323
  7. DIAMICRON (DIAMICRON - GLICLAZIDE) 30 MG (NOT SPECIFIED) [Suspect]
     Indication: TYPE 2 DIABETES MELLITUS
     Dosage: 30 MG TABLET, 4 TABLETS IN THE MORNING ORAL
     Route: 048
     Dates: start: 20081001
  8. INFLUENZA VIRUS (INFLUENZA IMMUNIZATION) 1 DF (NOT SPECIFIED) [Suspect]
     Indication: INFLUENZA IMMUNISATION
     Dosage: 1 DF 1X
     Dates: start: 20111101, end: 20111101
  9. ENALAPRIL MALEATE [Suspect]
     Indication: HYPERTENSION
     Dosage: 20 MG QD ORAL
     Route: 048
     Dates: start: 20081001
  10. SINTROM [Suspect]
     Indication: ATRIAL FIBRILLATION
     Dosage: 4 MG, FREQUENCY UNKNOWN ORAL
     Route: 048
     Dates: start: 20081001
  11. GLUCOPHAGE [Suspect]
     Indication: PRODUCT USED FOR UNKNOWN INDICATION
     Dosage: DF ORAL
     Route: 048
     Dates: start: 20081001
  12. LERCAN (LERCAN - LERCANIDIPINE  / SPIRONOLACTONE) 10 MG (NOT SPECIFIED [Suspect]
     Indication: HYPERTENSION
     Dosage: 10 MG QD, ORAL
     Route: 048
     Dates: start: 20081001
  13. LASILIX (LASILIX FUROSEMIDE) 40 MG (NOT SPECIFIED) [Suspect]
     Indication: CARDIAC FAILURE
     Dosage: 40 MG, TAKEN 1 TO 4 TABLETS PER DAY ORAL
     Route: 048
     Dates: start: 20081001

REACTIONS (2)
  - LEUKOCYTOCLASTIC VASCULITIS [None]
  - RENAL IMPAIRMENT [None]
